FAERS Safety Report 7227891-3 (Version None)
Quarter: 2011Q1

REPORT INFORMATION
  Report Type: 
  Country: None (occurrence: None)
  Receive Date: 20110114
  Receipt Date: 20110107
  Transmission Date: 20110831
  Serious: Yes (Hospitalization)
  Sender: FDA-Public Use
  Company Number: US-MERCK-1101USA00614

PATIENT
  Age: 69 Year
  Sex: Female

DRUGS (1)
  1. JANUVIA [Suspect]
     Indication: HYPERGLYCAEMIA
     Route: 048

REACTIONS (2)
  - ADVERSE EVENT [None]
  - BLOOD GLUCOSE ABNORMAL [None]
